FAERS Safety Report 9650851 (Version 1)
Quarter: 2013Q4

REPORT INFORMATION
  Report Type: Spontaneous
  Country: DE (occurrence: DE)
  Receive Date: 20131029
  Receipt Date: 20131029
  Transmission Date: 20140711
  Serious: Yes (Other)
  Sender: FDA-Public Use
  Company Number: DE-JNJFOC-20131012335

PATIENT
  Age: 38 Year
  Sex: Female
  Weight: 62 kg

DRUGS (4)
  1. CONCERTA [Suspect]
     Indication: SUICIDE ATTEMPT
     Dosage: 28 TABLETS.
     Route: 048
     Dates: start: 20131020, end: 20131021
  2. MEDIKINET [Suspect]
     Indication: SUICIDE ATTEMPT
     Dosage: 10 TABLETS
     Route: 048
     Dates: start: 20131020, end: 20131021
  3. FLUPIRTINE [Suspect]
     Indication: SUICIDE ATTEMPT
     Dosage: 10 TABLETS.
     Route: 048
     Dates: start: 20131020, end: 20131021
  4. ALCOHOL [Suspect]
     Indication: SUICIDE ATTEMPT
     Route: 048
     Dates: start: 20131020, end: 20131021

REACTIONS (3)
  - Intentional overdose [Unknown]
  - Tachycardia [Unknown]
  - Alcoholic [Unknown]
